FAERS Safety Report 10041813 (Version 1)
Quarter: 2014Q1

REPORT INFORMATION
  Report Type: Spontaneous
  Country: IT (occurrence: None)
  Receive Date: 20140325
  Receipt Date: 20140325
  Transmission Date: 20141002
  Serious: Yes (Other)
  Sender: FDA-Public Use
  Company Number: FK201400961

PATIENT
  Age: 67 Year
  Sex: Female

DRUGS (1)
  1. CEFTRIAXON [Suspect]
     Indication: BRONCHITIS
     Route: 030

REACTIONS (4)
  - Nasal discomfort [None]
  - Pruritus [None]
  - Oropharyngeal pain [None]
  - Blood pressure increased [None]
